FAERS Safety Report 4276554-5 (Version None)
Quarter: 2004Q1

REPORT INFORMATION
  Report Type: 
  Country: None (occurrence: None)
  Receive Date: 20040120
  Receipt Date: 20030321
  Transmission Date: 20041129
  Serious: Yes (Death)
  Sender: FDA-Public Use
  Company Number: KII-2003-0003640

PATIENT

DRUGS (1)
  1. THEOPHYLLINE [Suspect]
     Indication: CHRONIC OBSTRUCTIVE AIRWAYS DISEASE

REACTIONS (1)
  - DEATH [None]
